FAERS Safety Report 21165637 (Version 1)
Quarter: 2022Q3

REPORT INFORMATION
  Report Type: Spontaneous
  Country: IT (occurrence: IT)
  Receive Date: 20220803
  Receipt Date: 20220803
  Transmission Date: 20221027
  Serious: Yes (Life-Threatening, Other)
  Sender: FDA-Public Use
  Company Number: IT-JNJFOC-20220744233

PATIENT
  Age: 68 Year
  Sex: Male

DRUGS (3)
  1. DEXAMETHASONE [Suspect]
     Active Substance: DEXAMETHASONE
     Indication: Amyloidosis
     Dosage: 2 CYCLES
     Route: 065
     Dates: end: 20220221
  2. VELCADE [Suspect]
     Active Substance: BORTEZOMIB
     Indication: Amyloidosis
     Dosage: ON DAYS 1,8,15,22 OF EACH CYCLE
     Route: 058
     Dates: start: 20211227
  3. ALKERAN [Suspect]
     Active Substance: MELPHALAN
     Indication: Amyloidosis
     Dosage: 8 CP A DAY
     Route: 065

REACTIONS (6)
  - Primary amyloidosis [Unknown]
  - Hyperkalaemia [Unknown]
  - Drug ineffective [Unknown]
  - Fluid retention [Unknown]
  - Asthenia [Unknown]
  - Off label use [Unknown]
